FAERS Safety Report 21130473 (Version 3)
Quarter: 2022Q3

REPORT INFORMATION
  Report Type: Spontaneous
  Country: FR (occurrence: FR)
  Receive Date: 20220726
  Receipt Date: 20220823
  Transmission Date: 20221027
  Serious: Yes (Hospitalization, Other)
  Sender: FDA-Public Use
  Company Number: FR-BAYER-2022P008166

PATIENT
  Sex: Female

DRUGS (1)
  1. EYLEA [Suspect]
     Active Substance: AFLIBERCEPT
     Indication: Product used for unknown indication
     Dosage: STRENGTH: 40 MG/ML; 18 INJECTIONS DONE, IN A TOTAL OF 35 INJECTIONS; SOLUTION FOR INJECTION

REACTIONS (3)
  - Hospitalisation [Unknown]
  - Hepatic cyst [Unknown]
  - Ocular icterus [Unknown]
